FAERS Safety Report 6693848-4 (Version None)
Quarter: 2010Q2

REPORT INFORMATION
  Report Type: 
  Country: None (occurrence: None)
  Receive Date: 20100423
  Receipt Date: 20100409
  Transmission Date: 20101027
  Serious: Yes (Other)
  Sender: FDA-Public Use
  Company Number: PHHY2010US24633

PATIENT
  Age: 79 Year
  Sex: Female

DRUGS (4)
  1. DICLOFENAC [Suspect]
  2. METHOTREXATE [Suspect]
  3. IBUPROFEN [Suspect]
  4. PREDNISONE [Suspect]

REACTIONS (5)
  - ARTHRITIS [None]
  - OSTEOARTHRITIS [None]
  - OSTEOPOROSIS [None]
  - PAIN IN EXTREMITY [None]
  - RHEUMATOID ARTHRITIS [None]
